FAERS Safety Report 6035784-2 (Version None)
Quarter: 2009Q1

REPORT INFORMATION
  Report Type: 
  Country: None (occurrence: None)
  Receive Date: 20090113
  Receipt Date: 20090105
  Transmission Date: 20090719
  Serious: Yes (Hospitalization)
  Sender: FDA-Public Use
  Company Number: US-BIOGENIDEC-2008BI033534

PATIENT
  Age: 35 Year
  Sex: Male

DRUGS (8)
  1. TYSABRI [Suspect]
     Indication: MULTIPLE SCLEROSIS
     Route: 042
     Dates: start: 20070426, end: 20080814
  2. BACLOFEN [Concomitant]
  3. NEXIUM [Concomitant]
     Indication: DUODENAL ULCER
     Dates: start: 20080910
  4. PROVIGIL [Concomitant]
  5. ZONISAMIDE [Concomitant]
  6. KEPPRA [Concomitant]
     Indication: TREMOR
  7. CYMBALTA [Concomitant]
  8. MULTI-VITAMIN [Concomitant]

REACTIONS (8)
  - ACUTE PRERENAL FAILURE [None]
  - ANAEMIA [None]
  - DUODENAL ULCER [None]
  - GASTROINTESTINAL HAEMORRHAGE [None]
  - LOCALISED INFECTION [None]
  - LOSS OF CONSCIOUSNESS [None]
  - SEPSIS [None]
  - SKIN INFECTION [None]
